FAERS Safety Report 13446895 (Version 1)
Quarter: 2017Q2

REPORT INFORMATION
  Report Type: Spontaneous
  Country: US (occurrence: US)
  Receive Date: 20170414
  Receipt Date: 20170414
  Transmission Date: 20170830
  Serious: Yes (Hospitalization)
  Sender: FDA-Public Use
  Company Number: None

PATIENT
  Age: 54 Year
  Sex: Male
  Weight: 100 kg

DRUGS (28)
  1. FUROSEMIDE. [Concomitant]
     Active Substance: FUROSEMIDE
  2. METFORMIN HCL [Concomitant]
     Active Substance: METFORMIN HYDROCHLORIDE
  3. BUDESONIDE/FORMOTEROL FUMARATE [Concomitant]
     Active Substance: BUDESONIDE\FORMOTEROL FUMARATE
  4. OXYCODONE/ACETAMINOPHEN (PERCOCET) [Concomitant]
  5. FLUOXETINE HCL (PROZAC) [Concomitant]
  6. BUSPIRONE HCL (BUSPAR) [Concomitant]
  7. LISINOPRIL. [Suspect]
     Active Substance: LISINOPRIL
     Indication: HYPERTENSION
     Route: 048
     Dates: start: 20150801, end: 20170409
  8. AMPUL. NEB [Concomitant]
  9. OXYCODONE HCL (OXYCONTIN) [Concomitant]
  10. CLONIDINE HCL [Concomitant]
     Active Substance: CLONIDINE HYDROCHLORIDE
  11. POTASSIUM CHLORIDE. [Concomitant]
     Active Substance: POTASSIUM CHLORIDE
  12. ASPIRIN (ASPIRIN EC) [Concomitant]
  13. IPRATROPIUM/ALBUTEROL SULFATE [Concomitant]
  14. GABAPENTIN. [Concomitant]
     Active Substance: GABAPENTIN
  15. ALBUTEROL SULFATE (VENTOLIN HFA) [Concomitant]
  16. ALBUTEROL SULFATE. [Concomitant]
     Active Substance: ALBUTEROL SULFATE
  17. DUONEB [Concomitant]
     Active Substance: ALBUTEROL SULFATE\IPRATROPIUM BROMIDE
  18. TIOTROPIUM BROMIDE (SPIRIVA) [Concomitant]
  19. NEBIVOLOL HCL (BYSTOLIC) [Concomitant]
  20. CETIRIZINE HCL [Concomitant]
     Active Substance: CETIRIZINE HYDROCHLORIDE
  21. MONTELUKAST SODIUM. [Concomitant]
     Active Substance: MONTELUKAST SODIUM
  22. TAMSULOSIN HCL [Concomitant]
     Active Substance: TAMSULOSIN
  23. METHOCARBAMOL. [Concomitant]
     Active Substance: METHOCARBAMOL
  24. METHADONE HCL [Concomitant]
     Active Substance: METHADONE HYDROCHLORIDE
  25. ATORVASTATIN CALCIUM. [Concomitant]
     Active Substance: ATORVASTATIN CALCIUM
  26. PANTOPRAZOLE SOD SESQUIHYDRATE (PROTONIX) [Concomitant]
  27. OLANZAPINE. [Concomitant]
     Active Substance: OLANZAPINE
  28. OMEPRAZOLE. [Concomitant]
     Active Substance: OMEPRAZOLE

REACTIONS (5)
  - Swollen tongue [None]
  - Lip swelling [None]
  - Eye swelling [None]
  - Back pain [None]
  - Dyspnoea [None]

NARRATIVE: CASE EVENT DATE: 20170409
